FAERS Safety Report 8415705-5 (Version None)
Quarter: 2012Q2

REPORT INFORMATION
  Report Type: 
  Country: None (occurrence: None)
  Receive Date: 20120606
  Receipt Date: 20120530
  Transmission Date: 20120825
  Serious: Yes (Hospitalization)
  Sender: FDA-Public Use
  Company Number: CZ-AMGEN-KDC439659

PATIENT
  Age: 77 Year
  Sex: Female

DRUGS (6)
  1. CAVINTON FORTE [Concomitant]
     Dosage: UNK UNK, BID
  2. SIMVOR [Concomitant]
     Dosage: 10 MG, QD
  3. SECTRAL [Concomitant]
     Dosage: UNK UNK, QD
  4. PANGROL [Concomitant]
     Dosage: UNK UNK, QD
  5. PRESTARIUM [Concomitant]
     Dosage: 2 MG, QD
  6. DENOSUMAB [Suspect]
     Indication: OSTEOPOROSIS POSTMENOPAUSAL
     Dosage: 60 MG, Q6MO
     Route: 058
     Dates: start: 20071129, end: 20100527

REACTIONS (1)
  - FEMUR FRACTURE [None]
